FAERS Safety Report 10097219 (Version 4)
Quarter: 2014Q3

REPORT INFORMATION
  Report Type: Report from Study
  Country: US (occurrence: US)
  Receive Date: 20140422
  Receipt Date: 20140821
  Transmission Date: 20150326
  Serious: Yes (Other)
  Sender: FDA-Public Use
  Company Number: PHHY2013US088247

PATIENT
  Age: 50 Year
  Sex: Female
  Weight: 63.49 kg

DRUGS (6)
  1. ALLEGRA [Concomitant]
     Active Substance: FEXOFENADINE HYDROCHLORIDE
  2. INSULIN [Concomitant]
     Active Substance: INSULIN NOS
  3. BLACK COHOSH [Concomitant]
     Active Substance: BLACK COHOSH
     Indication: HOT FLUSH
  4. GILENYA [Suspect]
     Active Substance: FINGOLIMOD HYDROCHLORIDE
     Dosage: 0.5 MG, QD
     Route: 048
     Dates: start: 20120809
  5. GABAPENTIN. [Concomitant]
     Active Substance: GABAPENTIN
  6. GILENYA [Suspect]
     Active Substance: FINGOLIMOD HYDROCHLORIDE
     Indication: MULTIPLE SCLEROSIS
     Dosage: 0.5 MG, QOD
     Route: 048
     Dates: start: 20140110

REACTIONS (9)
  - Pollakiuria [Recovered/Resolved]
  - Lymphopenia [Not Recovered/Not Resolved]
  - Blindness [Not Recovered/Not Resolved]
  - Fall [Not Recovered/Not Resolved]
  - Full blood count decreased [Unknown]
  - Prescribed underdose [Unknown]
  - Leukopenia [Recovering/Resolving]
  - Abnormal sensation in eye [Not Recovered/Not Resolved]
  - Fungal infection [Unknown]

NARRATIVE: CASE EVENT DATE: 201401
